FAERS Safety Report 4275521-5 (Version None)
Quarter: 2004Q1

REPORT INFORMATION
  Report Type: 
  Country: None (occurrence: None)
  Receive Date: 20040121
  Receipt Date: 20040102
  Transmission Date: 20041129
  Serious: Yes (Hospitalization)
  Sender: FDA-Public Use
  Company Number: FR-GLAXOSMITHKLINE-B0318861A

PATIENT
  Age: 58 Year
  Sex: Male

DRUGS (12)
  1. CLAVENTIN [Suspect]
     Indication: PROPHYLACTIC CHEMOTHERAPY
     Dosage: 5G PER DAY
     Route: 042
     Dates: start: 20030919, end: 20031107
  2. FUNGIZONE [Suspect]
     Indication: PROPHYLACTIC CHEMOTHERAPY
     Dosage: 500MG THREE TIMES PER DAY
     Route: 048
     Dates: start: 20031024, end: 20031108
  3. BACTRIM DS [Suspect]
     Indication: PROPHYLACTIC CHEMOTHERAPY
     Dosage: 5ML TWICE PER DAY
     Route: 042
     Dates: start: 20030919, end: 20031106
  4. CYMEVAN [Suspect]
     Indication: PROPHYLACTIC CHEMOTHERAPY
     Dosage: 200MG PER DAY
     Route: 042
     Dates: start: 20031024, end: 20031106
  5. CELLCEPT [Suspect]
     Indication: PROPHYLACTIC CHEMOTHERAPY
     Dosage: 500MG PER DAY
     Route: 042
     Dates: start: 20031024, end: 20031106
  6. TRIFLUCAN [Suspect]
     Indication: PROPHYLACTIC CHEMOTHERAPY
     Dosage: 200MG TWICE PER DAY
     Route: 042
     Dates: start: 20031024, end: 20031109
  7. VANCOCIN HCL [Suspect]
     Indication: PROPHYLACTIC CHEMOTHERAPY
     Route: 065
     Dates: end: 20031101
  8. PROGRAF [Suspect]
     Route: 065
     Dates: end: 20031101
  9. SOLU-MEDROL [Suspect]
     Route: 065
     Dates: end: 20031101
  10. CIFLOX [Suspect]
     Route: 065
     Dates: end: 20031101
  11. LOXEN [Suspect]
     Route: 065
     Dates: end: 20031101
  12. FUROSEMIDE [Suspect]
     Route: 065
     Dates: end: 20031101

REACTIONS (2)
  - ANAEMIA [None]
  - BONE MARROW DEPRESSION [None]
